FAERS Safety Report 5903865-7 (Version None)
Quarter: 2008Q3

REPORT INFORMATION
  Report Type: 
  Country: None (occurrence: None)
  Receive Date: 20080930
  Receipt Date: 20080918
  Transmission Date: 20090109
  Serious: Yes (Other)
  Sender: FDA-Public Use
  Company Number: US-ELI_LILLY_AND_COMPANY-US200809004354

PATIENT
  Sex: Male

DRUGS (13)
  1. FORTEO [Suspect]
     Indication: MULTIPLE FRACTURES
     Dosage: 20 UG, DAILY (1/D)
     Dates: start: 20061001, end: 20080401
  2. SYNTHROID [Concomitant]
  3. FUROSEMIDE [Concomitant]
  4. ADVICOR [Concomitant]
  5. OMEPRAZOLE [Concomitant]
     Indication: GASTROOESOPHAGEAL REFLUX DISEASE
  6. METHADONE HCL [Concomitant]
  7. VICODIN [Concomitant]
  8. TEMAZEPAM [Concomitant]
  9. DIAZEPAM [Concomitant]
  10. POTASSIUM CHLORIDE [Concomitant]
  11. CALCIUM [Concomitant]
  12. GLYBURIDE [Concomitant]
  13. INSULIN [Concomitant]

REACTIONS (2)
  - BONE NEOPLASM [None]
  - RADIATION ASSOCIATED PAIN [None]
